FAERS Safety Report 10173690 (Version 1)
Quarter: 2014Q2

REPORT INFORMATION
  Report Type: Spontaneous
  Country: IT (occurrence: IT)
  Receive Date: 20140515
  Receipt Date: 20140515
  Transmission Date: 20141212
  Serious: Yes (Death)
  Sender: FDA-Public Use
  Company Number: IT-PFIZER INC-2014127943

PATIENT
  Age: 43 Year
  Sex: Male

DRUGS (8)
  1. METHYLPREDNISOLONE [Suspect]
     Indication: PNEUMOCYSTIS JIROVECII PNEUMONIA
     Dosage: 80 MG EVERY 12 H
  2. METHYLPREDNISOLONE [Suspect]
     Dosage: 40 MG TWICE A DAY
  3. METHYLPREDNISOLONE [Suspect]
     Dosage: 20 MG TWICE A DAY
  4. METHYLPREDNISOLONE [Suspect]
     Dosage: 20 MG/DAY
  5. SULFAMETHOXAZOLE W/TRIMETHOPRIM [Suspect]
     Indication: PNEUMOCYSTIS JIROVECII PNEUMONIA
     Dosage: 15 MG/KG/DIE OF TRIMETHOPRIM EVERY 8 H
  6. ATAZANAVIR [Concomitant]
     Indication: HIV INFECTION
  7. RITONAVIR [Concomitant]
     Indication: HIV INFECTION
  8. EMTRICITABINE/TENOFOVIR [Concomitant]
     Indication: HIV INFECTION

REACTIONS (5)
  - Herpes zoster disseminated [Fatal]
  - Acute respiratory distress syndrome [Fatal]
  - Abdominal pain [Unknown]
  - Tachycardia [Unknown]
  - Malaise [Unknown]
